FAERS Safety Report 9207703 (Version 1)
Quarter: 2013Q2

REPORT INFORMATION
  Report Type: Spontaneous
  Country: US (occurrence: None)
  Receive Date: 20130402
  Receipt Date: 20130402
  Transmission Date: 20140414
  Serious: Yes (Other)
  Sender: FDA-Public Use
  Company Number: None

PATIENT
  Age: 29 Year
  Sex: Male
  Weight: 81.19 kg

DRUGS (1)
  1. BUPRENORPHINE/NALOXONE [Suspect]
     Route: 060
     Dates: start: 20130325, end: 20130331

REACTIONS (7)
  - Product substitution issue [None]
  - Product quality issue [None]
  - Hypoaesthesia [None]
  - Hyperhidrosis [None]
  - Nausea [None]
  - Diarrhoea [None]
  - Insomnia [None]
